FAERS Safety Report 4702670-7 (Version None)
Quarter: 2005Q2

REPORT INFORMATION
  Report Type: 
  Country: None (occurrence: None)
  Receive Date: 20050629
  Receipt Date: 20041108
  Transmission Date: 20051028
  Serious: No
  Sender: FDA-Public Use
  Company Number: US-GLAXOSMITHKLINE-A0533053A

PATIENT
  Sex: Male

DRUGS (1)
  1. ZYBAN [Suspect]
     Dosage: 150MG TWICE PER DAY
     Route: 048

REACTIONS (3)
  - BALANCE DISORDER [None]
  - CONSTIPATION [None]
  - DIZZINESS [None]
